FAERS Safety Report 6185003-1 (Version None)
Quarter: 2009Q2

REPORT INFORMATION
  Report Type: 
  Country: None (occurrence: None)
  Receive Date: 20090511
  Receipt Date: 20090312
  Transmission Date: 20091009
  Serious: No
  Sender: FDA-Public Use
  Company Number: A0774214A

PATIENT
  Age: 78 Year
  Sex: Male

DRUGS (2)
  1. COREG CR [Suspect]
     Indication: DRUG USE FOR UNKNOWN INDICATION
  2. UROXATRAL [Suspect]
     Indication: BLADDER DISORDER
     Dosage: 10MG PER DAY
     Route: 048
     Dates: start: 20090101

REACTIONS (1)
  - BLOOD PRESSURE INCREASED [None]
